FAERS Safety Report 6887131-1 (Version None)
Quarter: 2010Q3

REPORT INFORMATION
  Report Type: 
  Country: None (occurrence: None)
  Receive Date: 20100730
  Receipt Date: 20100721
  Transmission Date: 20110219
  Serious: Yes (Hospitalization)
  Sender: FDA-Public Use
  Company Number: JP-ASTRAZENECA-2010SE31710

PATIENT
  Age: 58 Year
  Sex: Male
  Weight: 68 kg

DRUGS (8)
  1. CRESTOR [Suspect]
     Indication: HYPERLIPIDAEMIA
     Route: 048
     Dates: start: 20080514, end: 20100518
  2. CRESTOR [Suspect]
     Route: 048
     Dates: start: 20100519, end: 20100624
  3. AMLODIN OD [Concomitant]
     Indication: HYPERTENSION
     Route: 048
     Dates: start: 20061202, end: 20100702
  4. SERMION [Concomitant]
     Indication: SUBARACHNOID HAEMORRHAGE
     Route: 048
     Dates: start: 20061202
  5. SYMMETREL [Concomitant]
     Indication: PARKINSONISM
     Route: 048
     Dates: start: 20070209
  6. DEPAKENE [Concomitant]
     Indication: EPILEPSY
     Route: 048
     Dates: start: 20070725
  7. TAKEPRON [Concomitant]
     Indication: REFLUX OESOPHAGITIS
     Route: 048
     Dates: start: 20070725
  8. LIORESAL [Concomitant]
     Indication: EPILEPSY
     Route: 048
     Dates: start: 20070725

REACTIONS (3)
  - BLOOD CREATINE PHOSPHOKINASE INCREASED [None]
  - DYSCHEZIA [None]
  - MUSCULAR WEAKNESS [None]
